FAERS Safety Report 14542852 (Version 1)
Quarter: 2018Q1

REPORT INFORMATION
  Report Type: Spontaneous
  Country: IN (occurrence: IN)
  Receive Date: 20180216
  Receipt Date: 20180216
  Transmission Date: 20180509
  Serious: Yes (Hospitalization)
  Sender: FDA-Public Use
  Company Number: IN-SA-2018SA032689

PATIENT
  Age: 28 Year
  Sex: Male

DRUGS (8)
  1. RIFAMPICIN [Suspect]
     Active Substance: RIFAMPIN
     Indication: PULMONARY TUBERCULOSIS
     Route: 065
  2. ISONIAZID. [Suspect]
     Active Substance: ISONIAZID
     Indication: PULMONARY TUBERCULOSIS
     Route: 065
  3. RIFAMPICIN [Suspect]
     Active Substance: RIFAMPIN
     Indication: PULMONARY TUBERCULOSIS
     Route: 065
  4. PYRAZINAMIDE. [Suspect]
     Active Substance: PYRAZINAMIDE
     Indication: PULMONARY TUBERCULOSIS
     Route: 065
  5. ETHAMBUTOL [Suspect]
     Active Substance: ETHAMBUTOL HYDROCHLORIDE
     Indication: PULMONARY TUBERCULOSIS
     Route: 065
  6. ISONIAZID. [Suspect]
     Active Substance: ISONIAZID
     Indication: PULMONARY TUBERCULOSIS
     Route: 065
  7. PYRAZINAMIDE. [Suspect]
     Active Substance: PYRAZINAMIDE
     Indication: PULMONARY TUBERCULOSIS
     Route: 065
  8. ETHAMBUTOL [Suspect]
     Active Substance: ETHAMBUTOL HYDROCHLORIDE
     Indication: PULMONARY TUBERCULOSIS
     Route: 065

REACTIONS (19)
  - Right ventricular dilatation [Unknown]
  - Dysphonia [Not Recovered/Not Resolved]
  - Cachexia [Unknown]
  - Inappropriate schedule of drug administration [Unknown]
  - Right atrial dilatation [Unknown]
  - Venous pressure jugular increased [Unknown]
  - Pulmonary artery dilatation [Unknown]
  - Hypercapnia [Unknown]
  - Hypoxia [Unknown]
  - Pulmonary fibrosis [Unknown]
  - Oedema [Unknown]
  - Cardiac murmur [Unknown]
  - Paralysis recurrent laryngeal nerve [Unknown]
  - Emphysema [Unknown]
  - Dyspnoea [Recovering/Resolving]
  - Heart sounds abnormal [Unknown]
  - Pulmonary arterial hypertension [Unknown]
  - Tricuspid valve incompetence [Unknown]
  - Ortner^s syndrome [Unknown]
